FAERS Safety Report 9189667 (Version 1)
Quarter: 2013Q1

REPORT INFORMATION
  Report Type: Spontaneous
  Country: US (occurrence: None)
  Receive Date: 20130322
  Receipt Date: 20130322
  Transmission Date: 20140127
  Serious: Yes (Life-Threatening, Hospitalization)
  Sender: FDA-Public Use
  Company Number: None

PATIENT
  Sex: Male
  Weight: 90.4 kg

DRUGS (7)
  1. PAZOPANIB [Suspect]
     Indication: METASTATIC MALIGNANT MELANOMA
     Route: 048
     Dates: start: 20130123, end: 20130319
  2. GSK2118436 [Suspect]
     Indication: METASTATIC MALIGNANT MELANOMA
     Route: 048
     Dates: start: 20130122, end: 20130319
  3. OXYCODONE [Concomitant]
  4. FERROUS SULFATE [Concomitant]
  5. ASCORBIC ACID [Concomitant]
  6. OXYCODONE HCL [Concomitant]
  7. OXYCODONE 80 ME SR [Concomitant]

REACTIONS (1)
  - Pulmonary embolism [None]
